FAERS Safety Report 8126845-2 (Version None)
Quarter: 2012Q1

REPORT INFORMATION
  Report Type: 
  Country: None (occurrence: None)
  Receive Date: 20120210
  Receipt Date: 20120206
  Transmission Date: 20120608
  Serious: Yes (Other)
  Sender: FDA-Public Use
  Company Number: US-PFIZER INC-2012032352

PATIENT

DRUGS (1)
  1. CORDARONE [Suspect]
     Indication: ATRIAL FIBRILLATION
     Dosage: UNK

REACTIONS (6)
  - FALL [None]
  - TREMOR [None]
  - ATAXIA [None]
  - CONSTIPATION [None]
  - NAUSEA [None]
  - VOMITING [None]
